FAERS Safety Report 14720247 (Version 1)
Quarter: 2018Q1

REPORT INFORMATION
  Report Type: Spontaneous
  Country: US (occurrence: US)
  Receive Date: 20180330
  Receipt Date: 20180330
  Transmission Date: 20180509
  Serious: No
  Sender: FDA-Public Use
  Company Number: None

PATIENT
  Age: 24 Year
  Sex: Female

DRUGS (1)
  1. IMATINIB MES TAB 400MG [Suspect]
     Active Substance: IMATINIB
     Route: 048

REACTIONS (4)
  - Drug dose omission [None]
  - Vomiting [None]
  - Intentional dose omission [None]
  - Nausea [None]

NARRATIVE: CASE EVENT DATE: 20180330
